FAERS Safety Report 9393573 (Version 2)
Quarter: 2013Q3

REPORT INFORMATION
  Report Type: Report from Study
  Country: US (occurrence: US)
  Receive Date: 20130710
  Receipt Date: 20130904
  Transmission Date: 20140515
  Serious: Yes (Hospitalization)
  Sender: FDA-Public Use
  Company Number: US-PFIZER INC-2013200353

PATIENT
  Age: 70 Year
  Sex: Female
  Weight: 83.9 kg

DRUGS (6)
  1. BLINDED CELECOXIB [Suspect]
     Indication: ADENOCARCINOMA OF COLON
     Dosage: QD, STARTING ON DAY 1 OF CYCLE 2 OF FOLFOX, CONTINUED TO 3 YEARS
     Route: 048
     Dates: start: 20130530, end: 20130611
  2. BLINDED PLACEBO [Suspect]
     Indication: ADENOCARCINOMA OF COLON
     Dosage: QD, STARTING ON DAY 1 OF CYCLE 2 OF FOLFOX, CONTINUED TO 3 YEARS
     Route: 048
     Dates: start: 20130530, end: 20130611
  3. FLUOROURACIL [Suspect]
     Indication: ADENOCARCINOMA OF COLON
     Dosage: 400 MG/M2, IVP ON DAY 1
     Route: 042
     Dates: start: 20130516, end: 20130601
  4. FLUOROURACIL [Suspect]
     Dosage: 2400 MG/M2, IV OVER 46-48 HOURS ON DAY 1
     Route: 042
     Dates: start: 20130516, end: 20130601
  5. ELOXATIN [Concomitant]
     Indication: ADENOCARCINOMA OF COLON
     Dosage: 85 MG/M2, IV OVER 2 HOURS ON DAY 1
     Route: 042
     Dates: start: 20130516, end: 20130530
  6. LEUCOVORIN CALCIUM [Concomitant]
     Indication: ADENOCARCINOMA OF COLON
     Dosage: 400 MG/M2, IV OVER 2 HOURS ON DAY 1
     Route: 042
     Dates: start: 20130516, end: 20130530

REACTIONS (1)
  - Myocardial infarction [Recovered/Resolved]
